FAERS Safety Report 23285464 (Version 13)
Quarter: 2024Q2

REPORT INFORMATION
  Report Type: Report from Study
  Country: PT (occurrence: PT)
  Receive Date: 20231211
  Receipt Date: 20240620
  Transmission Date: 20240716
  Serious: Yes (Other)
  Sender: FDA-Public Use
  Company Number: PT-ABBVIE-5390609

PATIENT
  Age: 76 Year
  Sex: Female

DRUGS (14)
  1. CARBIDOPA\LEVODOPA [Suspect]
     Active Substance: CARBIDOPA\LEVODOPA
     Indication: Parkinson^s disease
     Dosage: 20 MG + 5 MG?MORNING:8CC;MAINT:4.5CC;EXTRA:1CC?FIRST ADMIN DATE: 2023
     Route: 050
     Dates: end: 20231006
  2. CARBIDOPA\LEVODOPA [Suspect]
     Active Substance: CARBIDOPA\LEVODOPA
     Dosage: 20 MG + 5 MG,MORN:11CC;MAINT:4.7CC;EXTRA:1.5CC
     Route: 050
     Dates: start: 202402, end: 20240510
  3. CARBIDOPA\LEVODOPA [Suspect]
     Active Substance: CARBIDOPA\LEVODOPA
     Dosage: 20 MG + 5 MG?FREQUENCY TEXT: MORN:11CC;MAINT:4.9CC;EXTRA:1.5CC?LAST ADMIN DATE: 2023
     Route: 050
     Dates: start: 20230208
  4. CARBIDOPA\LEVODOPA [Suspect]
     Active Substance: CARBIDOPA\LEVODOPA
     Dosage: 20 MG + 5 MG,?MORN:11CC;MAINT:4.9CC;EXTRA:1.5CC?DOSE INCREASED
     Route: 050
     Dates: start: 20231007, end: 202402
  5. CARBIDOPA\LEVODOPA [Suspect]
     Active Substance: CARBIDOPA\LEVODOPA
     Dosage: 20 MG + 5 MG,MORN:11CC;MAINT:4.7CC;EXTRA:1.5CC
     Route: 050
  6. CARBIDOPA\LEVODOPA [Suspect]
     Active Substance: CARBIDOPA\LEVODOPA
     Dosage: 20 MG + 5 MG,MORN:11CC;MAINT:4.7CC;EXTRA:1.5CC
     Route: 050
  7. LETROZOLE [Concomitant]
     Active Substance: LETROZOLE
     Indication: Product used for unknown indication
     Dosage: 2.5 MG, 1 TABLET?FORM STRENGTH: 2.5 MILLIGRAM?FREQUENCY TEXT: AT DINNER?START DATE TEXT: BEFORE D...
     Route: 048
  8. FOLIC ACID [Concomitant]
     Active Substance: FOLIC ACID
     Indication: Product used for unknown indication
     Dosage: 1 TABLET?FORM STRENGTH: 5 MILLIGRAM?FREQUENCY : AT LUNCH?START DATE : BEFORE DUODOPA
     Route: 048
  9. BUSCALMA [Concomitant]
     Indication: Product used for unknown indication
     Dosage: 2 TABLET?START DATE TEXT: BEFORE DUODOPA
     Route: 048
  10. CARBIDOPA AND LEVODOPA [Concomitant]
     Active Substance: CARBIDOPA\LEVODOPA
     Indication: Product used for unknown indication
     Dosage: 2.5 TABLET; FORM STRENGTH: 250 MILLIGRAM, 0.5 DOSAGE FORM, LAST ADMIN DATE: 2024
     Route: 048
     Dates: start: 20240510
  11. CARBIDOPA AND LEVODOPA [Concomitant]
     Active Substance: CARBIDOPA\LEVODOPA
     Indication: Product used for unknown indication
     Dosage: 1 TABLET; FORM STRENGTH: 100 MILLIGRAM, FIRST ADMIN DATE: 2024
     Route: 048
  12. VENLAFAXINE [Concomitant]
     Active Substance: VENLAFAXINE HYDROCHLORIDE
     Indication: Product used for unknown indication
     Dosage: 1 TABLET AT BREAKFAST BEFORE DUODOPA, FORM STRENGTH: 75 FORM STRENGTH: 75 ?MILLIGRAM , START DATE...
     Route: 048
  13. CHOLECALCIFEROL [Concomitant]
     Active Substance: CHOLECALCIFEROL
     Indication: Product used for unknown indication
     Dosage: START DATE TEXT: AFTER DUODOPA?FORM STRENGTH: 22400 IU
     Route: 048
  14. RIVOTRIL [Concomitant]
     Active Substance: CLONAZEPAM
     Indication: Product used for unknown indication
     Dosage: FORM STRENGTH 0.5 MILLIGRAM?FREQUENCY TEXT: 1 TABLET AT BEDTIME?START DATE TEXT: BEFORE DUODOPA
     Route: 048

REACTIONS (20)
  - Candida infection [Not Recovered/Not Resolved]
  - Excessive granulation tissue [Not Recovered/Not Resolved]
  - Mucosal disorder [Recovering/Resolving]
  - Streptococcal infection [Not Recovered/Not Resolved]
  - Acne [Recovered/Resolved]
  - Haemorrhage [Recovered/Resolved]
  - Skin hyperplasia [Not Recovered/Not Resolved]
  - Stoma site erythema [Recovering/Resolving]
  - Stoma site erythema [Recovering/Resolving]
  - Stoma site hypergranulation [Recovering/Resolving]
  - Weight decreased [Recovered/Resolved]
  - Pyoderma gangrenosum [Not Recovered/Not Resolved]
  - Stoma site ulcer [Unknown]
  - Device issue [Unknown]
  - Stoma site erythema [Recovered/Resolved]
  - Inflammation [Not Recovered/Not Resolved]
  - Fibrosis [Not Recovered/Not Resolved]
  - Stoma site discharge [Recovering/Resolving]
  - Bezoar [Unknown]
  - Stoma site odour [Recovered/Resolved]

NARRATIVE: CASE EVENT DATE: 20230201
